FAERS Safety Report 4667608-X (Version None)
Quarter: 2005Q2

REPORT INFORMATION
  Report Type: 
  Country: None (occurrence: None)
  Receive Date: 20050502
  Receipt Date: 20040712
  Transmission Date: 20051028
  Serious: Yes (Life-Threatening)
  Sender: FDA-Public Use
  Company Number: PHEH2004US07512

PATIENT
  Age: 53 Year
  Sex: Female

DRUGS (1)
  1. LOTREL [Suspect]

REACTIONS (2)
  - ANGIONEUROTIC OEDEMA [None]
  - TRACHEOSTOMY [None]
